APPROVED DRUG PRODUCT: PROSOM
Active Ingredient: ESTAZOLAM
Strength: 2MG **Federal Register determination that product was not discontinued or withdrawn for safety or effectiveness reasons**
Dosage Form/Route: TABLET;ORAL
Application: N019080 | Product #002
Applicant: ABBOTT LABORATORIES PHARMACEUTICAL PRODUCTS DIV
Approved: Dec 26, 1990 | RLD: Yes | RS: No | Type: DISCN